FAERS Safety Report 4391786-3 (Version None)
Quarter: 2004Q3

REPORT INFORMATION
  Report Type: 
  Country: None (occurrence: None)
  Receive Date: 20040701
  Receipt Date: 20040628
  Transmission Date: 20050211
  Serious: Yes (Death)
  Sender: FDA-Public Use
  Company Number: KII-2003-0003613

PATIENT
  Sex: Female

DRUGS (2)
  1. OXYCONTIN [Suspect]
     Indication: CANCER PAIN
     Dosage: 40 MG, BID
  2. VICODIN ES [Suspect]
     Indication: CANCER PAIN
     Dosage: QID PRN

REACTIONS (1)
  - DEATH [None]
